FAERS Safety Report 8589752-7 (Version None)
Quarter: 2012Q3

REPORT INFORMATION
  Report Type: 
  Country: None (occurrence: None)
  Receive Date: 20120813
  Receipt Date: 20120731
  Transmission Date: 20120928
  Serious: Yes (Hospitalization)
  Sender: FDA-Public Use
  Company Number: FR-ROCHE-1095702

PATIENT
  Age: 65 Year
  Sex: Male

DRUGS (5)
  1. ROCEPHIN [Suspect]
     Indication: ARTHRITIS BACTERIAL
     Route: 042
     Dates: start: 20120626, end: 20120628
  2. COLCHICINE [Suspect]
     Indication: ARTHRITIS BACTERIAL
     Route: 048
     Dates: start: 20120626, end: 20120628
  3. BISOPROLOL FUMARATE [Concomitant]
  4. ENALAPRIL MALEATE [Concomitant]
  5. AUGMENTIN '500' [Suspect]
     Indication: ARTHRITIS BACTERIAL
     Route: 048
     Dates: start: 20120621, end: 20120626

REACTIONS (1)
  - PANCYTOPENIA [None]
